FAERS Safety Report 18870178 (Version 4)
Quarter: 2021Q1

REPORT INFORMATION
  Report Type: Spontaneous
  Country: US (occurrence: US)
  Receive Date: 20210209
  Receipt Date: 20210308
  Transmission Date: 20210420
  Serious: Yes (Other)
  Sender: FDA-Public Use
  Company Number: US-ALLERGAN-2102146US

PATIENT
  Age: 71 Year
  Sex: Male

DRUGS (3)
  1. PLAVIX [Suspect]
     Active Substance: CLOPIDOGREL BISULFATE
     Indication: PRODUCT USED FOR UNKNOWN INDICATION
     Dosage: UNK
  2. WARFARIN [Suspect]
     Active Substance: WARFARIN
     Indication: PRODUCT USED FOR UNKNOWN INDICATION
  3. OZURDEX [Suspect]
     Active Substance: DEXAMETHASONE
     Indication: CYSTOID MACULAR OEDEMA
     Dosage: 0.7 MG, SINGLE
     Route: 031
     Dates: start: 20210105, end: 20210105

REACTIONS (7)
  - Vitreous haemorrhage [Recovering/Resolving]
  - Visual acuity reduced [Unknown]
  - Product contamination physical [Unknown]
  - Needle issue [Unknown]
  - Off label use [Unknown]
  - Vitreous floaters [Unknown]
  - Device breakage [Unknown]

NARRATIVE: CASE EVENT DATE: 20210105
